FAERS Safety Report 4379543-5 (Version None)
Quarter: 2004Q2

REPORT INFORMATION
  Report Type: 
  Country: None (occurrence: None)
  Receive Date: 20040614
  Receipt Date: 20040529
  Transmission Date: 20050107
  Serious: Yes (Other)
  Sender: FDA-Public Use
  Company Number: 2004008336

PATIENT
  Sex: Female
  Weight: 72.5755 kg

DRUGS (2)
  1. DILANTIN [Suspect]
     Indication: CONVULSION
     Dosage: ORAL
     Route: 048
  2. PHENOBARBITAL TAB [Concomitant]

REACTIONS (9)
  - AUTOIMMUNE DISORDER [None]
  - DIABETES MELLITUS [None]
  - GINGIVAL DISORDER [None]
  - GINGIVITIS [None]
  - HYPERPLASIA [None]
  - HYPOTHYROIDISM [None]
  - MASS [None]
  - PAIN [None]
  - SPINAL OSTEOARTHRITIS [None]
